FAERS Safety Report 9171712 (Version 1)
Quarter: 2013Q1

REPORT INFORMATION
  Report Type: Spontaneous
  Country: FR (occurrence: None)
  Receive Date: 20130313
  Receipt Date: 20130313
  Transmission Date: 20140127
  Serious: Yes (Other)
  Sender: FDA-Public Use
  Company Number: 1625839

PATIENT
  Age: 52 Year
  Sex: Male

DRUGS (4)
  1. CARBOPLATIN [Suspect]
     Indication: LUNG ADENOCARCINOMA
     Route: 042
     Dates: start: 20120724
  2. DEXAMETHASONE [Concomitant]
  3. PLITICAN [Concomitant]
  4. ZOPHREN [Concomitant]

REACTIONS (7)
  - Feeling of body temperature change [None]
  - Oxygen saturation decreased [None]
  - Hyperhidrosis [None]
  - Erythema [None]
  - Vomiting [None]
  - Drug hypersensitivity [None]
  - Infusion related reaction [None]
